FAERS Safety Report 5201435-X (Version None)
Quarter: 2007Q1

REPORT INFORMATION
  Report Type: 
  Country: None (occurrence: None)
  Receive Date: 20070108
  Receipt Date: 20061220
  Transmission Date: 20070707
  Serious: Yes (Hospitalization)
  Sender: FDA-Public Use
  Company Number: FR-BRISTOL-MYERS SQUIBB COMPANY-13624838

PATIENT
  Age: 67 Year
  Sex: Male

DRUGS (5)
  1. METFORMIN HCL [Suspect]
     Indication: DIABETES MELLITUS NON-INSULIN-DEPENDENT
     Route: 048
  2. APROVEL FILM-COATED/RM TABS 150 MG [Suspect]
     Indication: HYPERTENSION
     Route: 048
     Dates: end: 20061201
  3. PERMIXON [Suspect]
     Indication: PROSTATIC DISORDER
     Route: 048
  4. OFLOCET [Suspect]
  5. RIFADIN [Suspect]

REACTIONS (2)
  - BLOOD CREATININE INCREASED [None]
  - HYPERKALAEMIA [None]
